FAERS Safety Report 18398574 (Version 1)
Quarter: 2020Q4

REPORT INFORMATION
  Report Type: Spontaneous
  Country: US (occurrence: US)
  Receive Date: 20201019
  Receipt Date: 20201019
  Transmission Date: 20210114
  Serious: Yes (Death)
  Sender: FDA-Public Use
  Company Number: US-VERTEX PHARMACEUTICALS-2020-020366

PATIENT

DRUGS (1)
  1. TRIKAFTA [Suspect]
     Active Substance: ELEXACAFTOR\IVACAFTOR\TEZACAFTOR
     Indication: CYSTIC FIBROSIS
     Dosage: ELEXA10MG/TEZA50MG/IVA75MG AND IVA 150MG, UNKNOWN FREQUENCY
     Route: 048

REACTIONS (1)
  - Seizure [Fatal]

NARRATIVE: CASE EVENT DATE: 2020
